FAERS Safety Report 5971221-1 (Version None)
Quarter: 2008Q4

REPORT INFORMATION
  Report Type: 
  Country: None (occurrence: None)
  Receive Date: 20081128
  Receipt Date: 20081119
  Transmission Date: 20090506
  Serious: Yes (Hospitalization)
  Sender: FDA-Public Use
  Company Number: DE-AMGEN-US320949

PATIENT
  Sex: Male
  Weight: 81 kg

DRUGS (2)
  1. ENBREL [Suspect]
     Indication: PSORIASIS
     Route: 058
     Dates: start: 20080822, end: 20081111
  2. EZETIMIBE/SIMVASTATIN [Concomitant]
     Dates: start: 20080701

REACTIONS (1)
  - VERTIGO [None]
